FAERS Safety Report 9530809 (Version 1)
Quarter: 2013Q3

REPORT INFORMATION
  Report Type: Spontaneous
  Country: US (occurrence: US)
  Receive Date: 20130918
  Receipt Date: 20130918
  Transmission Date: 20140515
  Serious: No
  Sender: FDA-Public Use
  Company Number: US-BAYER-2013-111829

PATIENT
  Sex: Female
  Weight: 73 kg

DRUGS (11)
  1. BETASERON [Suspect]
     Indication: MULTIPLE SCLEROSIS
     Dosage: 0.25 MG, QOD
     Route: 058
     Dates: start: 2001, end: 201309
  2. LORATADINE [Concomitant]
  3. NASONEX [Concomitant]
  4. ALLER-G [Concomitant]
  5. TRAZODONE [Concomitant]
  6. CLARITIN [Concomitant]
  7. VITAMIN D [Concomitant]
  8. OMEGA 3 [Concomitant]
  9. MV [Concomitant]
  10. DOXYCYCLINE [Concomitant]
  11. PROBIOTICA [Concomitant]

REACTIONS (1)
  - Injection site reaction [Not Recovered/Not Resolved]
